FAERS Safety Report 6088564-6 (Version None)
Quarter: 2009Q1

REPORT INFORMATION
  Report Type: 
  Country: None (occurrence: None)
  Receive Date: 20090219
  Receipt Date: 20090212
  Transmission Date: 20090719
  Serious: Yes (Death)
  Sender: FDA-Public Use
  Company Number: 2009JP000766

PATIENT
  Age: 23 Year
  Sex: Female

DRUGS (5)
  1. FUNGUARD        (MICAFUNGIN) INJECTION [Suspect]
     Dosage: 100 MG,  /D, IV DRIP;   50 MG,  /D, IV DRIP
     Route: 041
     Dates: start: 20081119, end: 20081208
  2. FUNGUARD        (MICAFUNGIN) INJECTION [Suspect]
     Dosage: 100 MG,  /D, IV DRIP;   50 MG,  /D, IV DRIP
     Route: 041
     Dates: start: 20081209, end: 20081223
  3. TARGOCID [Concomitant]
  4. CARBENIN (BETAMIPRON, PANIPENEM) INJECTION [Concomitant]
  5. SOLU-MEDROL [Concomitant]

REACTIONS (3)
  - CHRONIC GRAFT VERSUS HOST DISEASE [None]
  - LUNG DISORDER [None]
  - RESPIRATORY FAILURE [None]
